FAERS Safety Report 23488456 (Version 1)
Quarter: 2024Q1

REPORT INFORMATION
  Report Type: Spontaneous
  Country: US (occurrence: US)
  Receive Date: 20240206
  Receipt Date: 20240206
  Transmission Date: 20240409
  Serious: No
  Sender: FDA-Public Use
  Company Number: US-SANOFI-01925358

PATIENT
  Age: 3 Year
  Sex: Male

DRUGS (1)
  1. DUPIXENT [Suspect]
     Active Substance: DUPILUMAB
     Indication: Dermatitis atopic

REACTIONS (6)
  - Dry skin [Unknown]
  - Lichenification [Unknown]
  - Strongyloides test positive [Unknown]
  - Infection parasitic [Unknown]
  - Eosinophil count increased [Unknown]
  - Drug ineffective [Unknown]
